FAERS Safety Report 10451726 (Version 2)
Quarter: 2014Q3

REPORT INFORMATION
  Report Type: Spontaneous
  Country: US (occurrence: US)
  Receive Date: 20140915
  Receipt Date: 20140922
  Transmission Date: 20150326
  Serious: No
  Sender: FDA-Public Use
  Company Number: US-009507513-1408USA016024

PATIENT
  Sex: Female

DRUGS (1)
  1. NASONEX [Suspect]
     Active Substance: MOMETASONE FUROATE
     Dosage: 50 MICROGRAM/ ONE SPRAY IN EACH NOSTRIL ONCE DAILY
     Route: 045

REACTIONS (4)
  - Drug dose omission [Unknown]
  - Product tampering [Unknown]
  - No adverse event [Unknown]
  - Product quality issue [Unknown]
